FAERS Safety Report 11659379 (Version 3)
Quarter: 2016Q1

REPORT INFORMATION
  Report Type: Spontaneous
  Country: US (occurrence: US)
  Receive Date: 20151026
  Receipt Date: 20160201
  Transmission Date: 20160525
  Serious: No
  Sender: FDA-Public Use
  Company Number: US-BAYER-2015-447216

PATIENT
  Sex: Female

DRUGS (17)
  1. SYNTHROID [Concomitant]
     Active Substance: LEVOTHYROXINE SODIUM
     Dosage: 75 ?G, 3XS A WEEK
  2. ZINC [Concomitant]
     Active Substance: ZINC\ZINC CHLORIDE
     Dosage: UNK, AT LUNCH AND MIDDAY
  3. PROCARDIA [Suspect]
     Active Substance: NIFEDIPINE
     Indication: RAYNAUD^S PHENOMENON
     Dosage: 10 MG, AM IN THE WINTER
  4. POTASSIUM [Concomitant]
     Active Substance: POTASSIUM
     Dosage: UNK, AT LUNCH AND MIDDAY
     Dates: start: 1976
  5. VITAMIN A + D [Concomitant]
     Dosage: UNK, AT LUNCH AND MIDDAY
  6. ADALAT CC [Suspect]
     Active Substance: NIFEDIPINE
     Dosage: UNK
  7. ERGOCALCIFEROL. [Concomitant]
     Active Substance: ERGOCALCIFEROL
     Dosage: UNK
     Dates: start: 20130707
  8. PROCARDIA [Suspect]
     Active Substance: NIFEDIPINE
     Indication: RAYNAUD^S PHENOMENON
     Dosage: 20 MG, HS IN THE BEDTIME
  9. PROCARDIA [Suspect]
     Active Substance: NIFEDIPINE
     Indication: RAYNAUD^S PHENOMENON
     Dosage: 10 MG, QD MID SUMMER
  10. CALCIUM [Concomitant]
     Active Substance: CALCIUM
     Dosage: UNK, AT LUNCH AND MIDDAY
     Dates: start: 1976
  11. MAGNESIUM [Concomitant]
     Active Substance: MAGNESIUM
     Dosage: UNK, AT LUNCH AND MIDDAY
     Dates: start: 1976
  12. COQ10 [Concomitant]
     Active Substance: UBIDECARENONE
     Dosage: UNK, AT LUNCH AND MIDDAY
  13. MEGA B [VITAMIN B NOS] [Concomitant]
     Dosage: UNK, AT LUNCH AND MIDDAY
  14. VITAMIN D2 [Concomitant]
     Active Substance: ERGOCALCIFEROL
     Dosage: 1.25 MG, EVERY OTHER WEEK
     Dates: start: 20130707
  15. DOXYCYCLINE HYCLATE [DOXYCYCLINE HYCLATE] [Concomitant]
     Dosage: 100 MG, QD
  16. SYNTHROID [Concomitant]
     Active Substance: LEVOTHYROXINE SODIUM
     Dosage: 87.5 ?G, 4XS A WEEK
     Dates: start: 199211
  17. FERRO-SEQUELS [Concomitant]
     Dosage: UNK, AT LUNCH AND MIDDAY

REACTIONS (5)
  - Cough [None]
  - Lethargy [None]
  - Asthma [None]
  - Wheezing [None]
  - Drug hypersensitivity [None]
